FAERS Safety Report 6531820-5 (Version None)
Quarter: 2010Q1

REPORT INFORMATION
  Report Type: 
  Country: None (occurrence: None)
  Receive Date: 20100107
  Receipt Date: 20100107
  Transmission Date: 20100710
  Serious: Yes (Other)
  Sender: FDA-Public Use
  Company Number: None

PATIENT
  Sex: Female
  Weight: 72.5755 kg

DRUGS (2)
  1. NUVARING [Suspect]
     Indication: CONTRACEPTION
     Dosage: 0.120MG ETONOGESTREL PER DAY VAG 0.015MG ETHINYL ESTRADIOL PER DAY VAG
     Route: 067
     Dates: start: 20091012, end: 20091228
  2. MONISTAT [Concomitant]

REACTIONS (7)
  - DYSPAREUNIA [None]
  - DYSURIA [None]
  - HEADACHE [None]
  - MOOD ALTERED [None]
  - VULVOVAGINAL BURNING SENSATION [None]
  - VULVOVAGINAL DRYNESS [None]
  - VULVOVAGINAL MYCOTIC INFECTION [None]
